FAERS Safety Report 12898261 (Version 1)
Quarter: 2016Q4

REPORT INFORMATION
  Report Type: Report from Study
  Country: US (occurrence: US)
  Receive Date: 20161031
  Receipt Date: 20161031
  Transmission Date: 20170207
  Serious: Yes (Hospitalization)
  Sender: FDA-Public Use
  Company Number: PHHO2011US022834

PATIENT
  Age: 76 Year
  Sex: Female
  Weight: 64.8 kg

DRUGS (4)
  1. EVEROLIMUS [Suspect]
     Active Substance: EVEROLIMUS
     Indication: LEUKAEMIA
  2. GSK1120212 [Suspect]
     Active Substance: TRAMETINIB
     Indication: NEOPLASM
     Dosage: 1.5 MG, QD
     Route: 048
     Dates: start: 20110908, end: 20111130
  3. EVEROLIMUS [Suspect]
     Active Substance: EVEROLIMUS
     Indication: NEOPLASM
     Dosage: 2.5 MG, TIW
     Route: 048
     Dates: start: 20110908, end: 20111107
  4. GSK1120212 [Suspect]
     Active Substance: TRAMETINIB
     Indication: LEUKAEMIA

REACTIONS (1)
  - Pleural effusion [Recovered/Resolved]

NARRATIVE: CASE EVENT DATE: 20111227
